FAERS Safety Report 16287175 (Version 4)
Quarter: 2019Q3

REPORT INFORMATION
  Report Type: Report from Study
  Country: US (occurrence: US)
  Receive Date: 20190508
  Receipt Date: 20190709
  Transmission Date: 20191004
  Serious: Yes (Hospitalization, Other)
  Sender: FDA-Public Use
  Company Number: US-PFIZER INC-2019165312

PATIENT
  Age: 67 Year
  Sex: Male

DRUGS (2)
  1. SUTENT [Suspect]
     Active Substance: SUNITINIB MALATE
     Indication: RENAL CELL CARCINOMA
     Dosage: 50 MG, CYCLIC(4 WEEKS ON/2 WEEKS OFF) [DAILY FOR 28 DAYS OF 42 DAY CYCLE]
     Route: 048
     Dates: start: 20190408, end: 20190417
  2. SUTENT [Suspect]
     Active Substance: SUNITINIB MALATE
     Dosage: 25 MG, CYCLIC (1X/DAY, DAILY, 4 WEEKS ON, 2 WEEKS OFF)
     Route: 048
     Dates: start: 20190520, end: 20190624

REACTIONS (15)
  - Dehydration [Recovered/Resolved]
  - Fatigue [Unknown]
  - Contusion [Unknown]
  - Eating disorder [Unknown]
  - Decreased appetite [Unknown]
  - Blood pressure increased [Unknown]
  - Nausea [Not Recovered/Not Resolved]
  - Dyspnoea [Not Recovered/Not Resolved]
  - Somnolence [Not Recovered/Not Resolved]
  - Condition aggravated [Not Recovered/Not Resolved]
  - Abdominal pain [Not Recovered/Not Resolved]
  - Streptococcal infection [Recovered/Resolved]
  - Weight decreased [Unknown]
  - Oesophageal candidiasis [Recovered/Resolved]
  - Neoplasm progression [Unknown]

NARRATIVE: CASE EVENT DATE: 2019
